FAERS Safety Report 4976053-9 (Version None)
Quarter: 2006Q2

REPORT INFORMATION
  Report Type: 
  Country: None (occurrence: None)
  Receive Date: 20060412
  Receipt Date: 20060403
  Transmission Date: 20061013
  Serious: Yes (Hospitalization)
  Sender: FDA-Public Use
  Company Number: FR-2006-008120

PATIENT
  Age: 53 Year
  Sex: Female
  Weight: 60 kg

DRUGS (8)
  1. SOTALOL HYDROCHLORIDE [Suspect]
     Indication: CEREBRAL ARTERY OCCLUSION
     Dosage: 180 MG, 1X/DAY, ORAL
     Route: 048
     Dates: start: 20050701
  2. PROZAC [Suspect]
     Dosage: 20 MG, 1X/DAY
     Dates: start: 20050701
  3. ZOCOR [Suspect]
     Indication: LIPIDS ABNORMAL
     Dosage: 80 MG, 1X/DAY
     Dates: start: 20050701
  4. CRESTOR [Suspect]
     Dates: start: 20050901
  5. PREVISCAN (FLUINDIONE) TABLET [Suspect]
     Indication: CEREBRAL ARTERY OCCLUSION
     Dosage: 5 MG 1X/DAY ORAL
     Route: 048
     Dates: start: 20050701
  6. HEPARIN [Suspect]
  7. PREVISCAN (FLUINDIONE) [Suspect]
     Indication: CEREBRAL ARTERY OCCLUSION
     Dosage: 5MG 1X/DAY, ORAL
     Route: 048
     Dates: start: 20050701
  8. HEPARIN [Suspect]

REACTIONS (3)
  - ABDOMINAL HAEMATOMA [None]
  - HAEMATOMA [None]
  - INTERNATIONAL NORMALISED RATIO INCREASED [None]
